FAERS Safety Report 9236891 (Version 4)
Quarter: 2014Q2

REPORT INFORMATION
  Report Type: Spontaneous
  Country: JP (occurrence: JP)
  Receive Date: 20130417
  Receipt Date: 20140402
  Transmission Date: 20141212
  Serious: Yes (Life-Threatening, Hospitalization)
  Sender: FDA-Public Use
  Company Number: JP-BAYER-2013-043510

PATIENT
  Age: 41 Year
  Sex: Female
  Weight: 35 kg

DRUGS (22)
  1. BAYASPIRIN [Suspect]
     Indication: ANTICOAGULANT THERAPY
     Dosage: 100 MG, DAILY
     Route: 050
     Dates: start: 20121005, end: 20121026
  2. WARFARIN [Suspect]
     Indication: ANTICOAGULANT THERAPY
     Dosage: UNK
     Route: 050
     Dates: start: 20121005
  3. HEPARIN [Concomitant]
     Route: 042
  4. ANCARON [Concomitant]
     Dosage: 100 MG, DAILY
     Route: 050
     Dates: start: 20121005
  5. ANCARON [Concomitant]
     Dosage: DAILY DOSE 200 MG
     Route: 048
     Dates: start: 201109
  6. MAGMITT [Concomitant]
     Dosage: 750 MG, DAILY
     Route: 050
     Dates: start: 20121005
  7. ITOROL [Concomitant]
     Dosage: 40 MG, DAILY
     Route: 050
     Dates: start: 20121006
  8. LASIX [Concomitant]
     Dosage: 10 MG, DAILY
     Route: 050
     Dates: start: 20121006
  9. LASIX [Concomitant]
     Dosage: 20 MG, DAILY
     Route: 048
     Dates: start: 201109
  10. ARTIST [Concomitant]
     Dosage: 1.25 MG, DAILY
     Route: 050
     Dates: start: 20121006
  11. ARTIST [Concomitant]
     Dosage: 0.625 MG, DAILY
     Route: 048
     Dates: start: 201109
  12. TAKEPRON [Concomitant]
     Dosage: 15 MG, DAILY
     Route: 050
     Dates: start: 20121007
  13. TAKEPRON [Concomitant]
     Dosage: 15 MG, DAILY
     Route: 048
     Dates: start: 201109
  14. ALDACTONE A [Concomitant]
     Dosage: 25 MG, DAILY
     Route: 050
     Dates: start: 20121007
  15. ALDACTONE A [Concomitant]
     Dosage: 25 MG, DAILY
     Route: 048
     Dates: start: 201109
  16. DIART [Concomitant]
     Dosage: UNK
     Route: 048
     Dates: start: 201109
  17. TANATRIL [Concomitant]
     Dosage: 2.5 MG, DAILY
     Route: 048
     Dates: start: 201109
  18. TOLVAPTAN [Concomitant]
     Dosage: 2.5 MG, DAILY
     Route: 048
     Dates: start: 201109
  19. THYRADIN [Concomitant]
     Dosage: 100 ?G, DAILY
     Route: 048
     Dates: start: 201109
  20. FLUITRAN [Concomitant]
     Dosage: 1 MG, DAILY
     Route: 048
     Dates: start: 201109
  21. FERROMIA [Concomitant]
     Dosage: 100 MG, DAILY
     Route: 048
     Dates: start: 201109
  22. LOCHOL [Concomitant]
     Dosage: 20 MG, DAILY
     Route: 048
     Dates: start: 201109

REACTIONS (6)
  - Colitis ischaemic [Recovered/Resolved]
  - Haematochezia [Recovered/Resolved]
  - Anaemia [None]
  - Lower gastrointestinal haemorrhage [Recovered/Resolved]
  - Labelled drug-drug interaction medication error [None]
  - Blood pressure decreased [None]
